FAERS Safety Report 20237522 (Version 1)
Quarter: 2021Q4

REPORT INFORMATION
  Report Type: Spontaneous
  Country: US (occurrence: None)
  Receive Date: 20211227
  Receipt Date: 20211227
  Transmission Date: 20220303
  Serious: Yes (Hospitalization)
  Sender: FDA-Public Use
  Company Number: None

PATIENT
  Sex: Male

DRUGS (21)
  1. CAPECITABINE [Suspect]
     Active Substance: CAPECITABINE
     Indication: Gastric cancer
     Dosage: FREQUENCY : TWICE A DAY;?
     Route: 048
  2. TYLENOL WITH CODEINE [Concomitant]
     Active Substance: ACETAMINOPHEN\CODEINE PHOSPHATE
  3. ACYCLOVIR [Concomitant]
     Active Substance: ACYCLOVIR
  4. AMOXICILLLIN [Concomitant]
  5. VITAMIN B12 [Concomitant]
     Active Substance: CYANOCOBALAMIN
  6. CAPECITABINE [Concomitant]
     Active Substance: CAPECITABINE
  7. VIT D 1000 [Concomitant]
  8. BENADRYL [Concomitant]
     Active Substance: DIPHENHYDRAMINE HYDROCHLORIDE
  9. FAMOTIDINE [Concomitant]
     Active Substance: FAMOTIDINE
  10. FUROSEMIDE [Concomitant]
     Active Substance: FUROSEMIDE
  11. NORCO [Concomitant]
     Active Substance: ACETAMINOPHEN\HYDROCODONE BITARTRATE
  12. IBUPROFEN [Concomitant]
     Active Substance: IBUPROFEN
  13. IRINOTECAN [Concomitant]
     Active Substance: IRINOTECAN
  14. KEFLEX [Concomitant]
     Active Substance: CEPHALEXIN
  15. KLORCON [Concomitant]
  16. LIDOCAINE VISC [Concomitant]
  17. LOSARTAN [Concomitant]
     Active Substance: LOSARTAN
  18. MEGESTROL [Concomitant]
     Active Substance: MEGESTROL
  19. ZOFRAN [Concomitant]
     Active Substance: ONDANSETRON HYDROCHLORIDE
  20. TAMSULOSIN [Concomitant]
     Active Substance: TAMSULOSIN
  21. ZYLOPRIM [Concomitant]
     Active Substance: ALLOPURINOL

REACTIONS (8)
  - Exophthalmos [None]
  - Oral mucosal blistering [None]
  - Stomatitis [None]
  - Lip swelling [None]
  - Skin discolouration [None]
  - Onychomadesis [None]
  - Peripheral swelling [None]
  - Therapy cessation [None]
